FAERS Safety Report 9537833 (Version 4)
Quarter: 2014Q1

REPORT INFORMATION
  Report Type: Report from Study
  Country: US (occurrence: US)
  Receive Date: 20130919
  Receipt Date: 20140312
  Transmission Date: 20141002
  Serious: Yes (Other)
  Sender: FDA-Public Use
  Company Number: PHHY2013US092190

PATIENT
  Age: 42 Year
  Sex: Female

DRUGS (5)
  1. GILENYA [Suspect]
     Indication: RELAPSING-REMITTING MULTIPLE SCLEROSIS
     Dosage: 0.5 MG, QD
     Route: 048
     Dates: start: 201305, end: 201309
  2. PRISTIQ [Concomitant]
     Indication: DEPRESSION
     Dosage: 50 MG, QD
     Route: 048
     Dates: start: 20120611
  3. PRISTIQ [Concomitant]
     Dosage: 50 MG, UNK
     Dates: start: 20130207
  4. AMITRIPTYLINE [Concomitant]
     Indication: HEADACHE
     Dosage: 10 MG, QHS
     Route: 048
     Dates: start: 20130719
  5. RELPAX [Concomitant]
     Indication: HEADACHE
     Dosage: 40 MG, QD
     Route: 048
     Dates: start: 201307, end: 201308

REACTIONS (8)
  - Retinal haemorrhage [Recovered/Resolved]
  - Epistaxis [Recovered/Resolved]
  - Night sweats [Unknown]
  - Myalgia [Unknown]
  - Balance disorder [Unknown]
  - Hypertension [Recovered/Resolved]
  - Headache [Recovered/Resolved]
  - Vision blurred [Recovering/Resolving]
